FAERS Safety Report 11793690 (Version 2)
Quarter: 2015Q4

REPORT INFORMATION
  Report Type: Spontaneous
  Country: CN (occurrence: CN)
  Receive Date: 20151202
  Receipt Date: 20151208
  Transmission Date: 20160305
  Serious: Yes (Death)
  Sender: FDA-Public Use
  Company Number: CN-PURDUE PHARMA-GBR-2015-0032421

PATIENT
  Age: 52 Year
  Sex: Female

DRUGS (16)
  1. MORPHINE SULFATE. [Concomitant]
     Active Substance: MORPHINE SULFATE
     Dosage: 30 MG, TID
     Route: 048
     Dates: start: 20151118, end: 20151118
  2. MORPHINE SULFATE. [Concomitant]
     Active Substance: MORPHINE SULFATE
     Dosage: 30 MG, UNK
     Route: 048
     Dates: start: 20151117, end: 20151117
  3. MORPHINE SULFATE. [Concomitant]
     Active Substance: MORPHINE SULFATE
     Dosage: 5 MG, UNK
     Route: 058
     Dates: start: 20151115, end: 20151115
  4. OXYCONTIN [Suspect]
     Active Substance: OXYCODONE HYDROCHLORIDE
     Indication: PAIN
     Dosage: 80 MG, BID
     Route: 048
     Dates: start: 20151119
  5. OXYCONTIN [Suspect]
     Active Substance: OXYCODONE HYDROCHLORIDE
     Indication: LUNG NEOPLASM MALIGNANT
     Dosage: 40 MG IN THE MORNING AND 50 MG IN THE EVENING
     Route: 048
     Dates: start: 20151116, end: 20151118
  6. MORPHINE SULFATE. [Concomitant]
     Active Substance: MORPHINE SULFATE
     Dosage: 10 MG, UNK
     Route: 058
     Dates: start: 20151118, end: 20151118
  7. MORPHINE SULFATE. [Concomitant]
     Active Substance: MORPHINE SULFATE
     Dosage: 10 MG, FIVE TIMES
     Route: 048
     Dates: start: 20151115, end: 20151115
  8. OXYCONTIN [Suspect]
     Active Substance: OXYCODONE HYDROCHLORIDE
     Dosage: 10 MG, BID
     Route: 048
     Dates: start: 20151112, end: 20151113
  9. OXYCONTIN [Suspect]
     Active Substance: OXYCODONE HYDROCHLORIDE
     Dosage: 20 MG, DAILY
     Route: 048
     Dates: start: 20151114, end: 20151115
  10. MORPHINE SULFATE. [Concomitant]
     Active Substance: MORPHINE SULFATE
     Dosage: 10 MG, DAILY
     Route: 048
     Dates: start: 20151112, end: 20151112
  11. MORPHINE SULFATE. [Concomitant]
     Active Substance: MORPHINE SULFATE
     Dosage: 30 MG, TWICE
     Route: 048
     Dates: start: 20151115, end: 20151115
  12. MORPHINE SULFATE. [Concomitant]
     Active Substance: MORPHINE SULFATE
     Dosage: 10 MG, FIVE TIMES
     Route: 048
     Dates: start: 20151114, end: 20151114
  13. MORPHINE SULFATE. [Concomitant]
     Active Substance: MORPHINE SULFATE
     Dosage: 10 MG, TWICE
     Route: 048
     Dates: start: 20151113, end: 20151113
  14. MORPHINE SULFATE. [Concomitant]
     Active Substance: MORPHINE SULFATE
     Indication: BREAKTHROUGH PAIN
     Dosage: 14 MG, UNK
     Route: 058
     Dates: start: 20151118, end: 20151118
  15. MORPHINE SULFATE. [Concomitant]
     Active Substance: MORPHINE SULFATE
     Dosage: 5 MG, UNK
     Route: 058
     Dates: start: 20151114, end: 20151114
  16. MORPHINE SULFATE. [Concomitant]
     Active Substance: MORPHINE SULFATE
     Dosage: 5 MG, TWICE
     Route: 058
     Dates: start: 20151113, end: 20151113

REACTIONS (4)
  - Death [Fatal]
  - Inadequate analgesia [Unknown]
  - Breakthrough pain [Unknown]
  - Heart rate increased [Unknown]
